FAERS Safety Report 9603132 (Version 4)
Quarter: 2013Q4

REPORT INFORMATION
  Report Type: Spontaneous
  Country: JP (occurrence: JP)
  Receive Date: 20131007
  Receipt Date: 20131202
  Transmission Date: 20140711
  Serious: Yes (Life-Threatening, Hospitalization)
  Sender: FDA-Public Use
  Company Number: JP-BAYER-2012-061253

PATIENT
  Age: 67 Year
  Sex: Male
  Weight: 72.11 kg

DRUGS (8)
  1. NEXAVAR [Suspect]
     Indication: HEPATOCELLULAR CARCINOMA
     Dosage: 400 MG, BID
     Route: 048
     Dates: start: 20120509, end: 20130927
  2. TAKEPRON [Concomitant]
     Dosage: 15 MG, OM
     Route: 048
  3. FERROMIA [Concomitant]
     Dosage: 50 MG, OM
     Route: 048
  4. ADALAT CR [Concomitant]
     Dosage: 40 MG, OM
     Route: 048
  5. BAYASPIRIN [Concomitant]
     Dosage: 100 MG, BID
     Route: 048
  6. OLMETEC [Concomitant]
     Dosage: 40 MG, OM
     Route: 048
  7. LOXONIN [Concomitant]
     Dosage: 60 MG, TID
     Route: 048
  8. MIYA BM [Concomitant]
     Dosage: 1 DF, TID
     Route: 048

REACTIONS (10)
  - Rash [Recovered/Resolved]
  - Hypertension [None]
  - Arthralgia [None]
  - Rash [None]
  - Diarrhoea [None]
  - Rash [Recovered/Resolved]
  - Arterial thrombosis [Recovering/Resolving]
  - Renal artery thrombosis [Recovering/Resolving]
  - Hydrocele [Recovering/Resolving]
  - Myocardial infarction [Recovering/Resolving]
